FAERS Safety Report 4977151-6 (Version None)
Quarter: 2006Q1

REPORT INFORMATION
  Report Type: 
  Country: None (occurrence: None)
  Receive Date: 20060223
  Receipt Date: 20050604
  Transmission Date: 20060701
  Serious: Yes (Hospitalization, Other)
  Sender: FDA-Public Use
  Company Number: HQWYE300907JUN05

PATIENT
  Age: 55 Year
  Sex: Male
  Weight: 111.68 kg

DRUGS (2)
  1. EFFEXOR [Suspect]
     Indication: DEPRESSION
     Dosage: 150 MG 1X PER 1 DAY, ORAL
     Route: 048
     Dates: start: 20050413, end: 20050413
  2. RANITIDINE [Concomitant]

REACTIONS (2)
  - ACCIDENTAL OVERDOSE [None]
  - FEELING JITTERY [None]
